FAERS Safety Report 24035706 (Version 1)
Quarter: 2024Q3

REPORT INFORMATION
  Report Type: Spontaneous
  Country: US (occurrence: US)
  Receive Date: 20240701
  Receipt Date: 20240701
  Transmission Date: 20241017
  Serious: Yes (Hospitalization, Other)
  Sender: HIKMA
  Company Number: US-MLMSERVICE-20240410-PI020078-00150-1

PATIENT
  Age: 47 Year
  Sex: Male

DRUGS (2)
  1. FLUCONAZOLE [Suspect]
     Active Substance: FLUCONAZOLE
     Indication: Meningitis cryptococcal
     Dosage: UNKNOWN
     Route: 065
  2. AMPHOTERICIN B [Concomitant]
     Active Substance: AMPHOTERICIN B
     Indication: Meningitis cryptococcal
     Dosage: INDUCTION REGIMEN
     Route: 065

REACTIONS (7)
  - Hypomagnesaemia [Recovered/Resolved]
  - Acute kidney injury [Recovering/Resolving]
  - Pallor [Unknown]
  - Drug reaction with eosinophilia and systemic symptoms [Unknown]
  - Hypokalaemia [Recovered/Resolved]
  - Rash pruritic [Recovered/Resolved]
  - Rash maculo-papular [Unknown]
